FAERS Safety Report 12670782 (Version 1)
Quarter: 2016Q3

REPORT INFORMATION
  Report Type: Spontaneous
  Country: US (occurrence: US)
  Receive Date: 20160822
  Receipt Date: 20160822
  Transmission Date: 20161109
  Serious: No
  Sender: FDA-Public Use
  Company Number: US-JAZZ-2016-US-006020

PATIENT
  Sex: Male

DRUGS (13)
  1. APIDRA [Concomitant]
     Active Substance: INSULIN GLULISINE
  2. XYREM [Suspect]
     Active Substance: SODIUM OXYBATE
     Indication: NARCOLEPSY
     Dosage: 2.25 G, BID
     Route: 048
     Dates: start: 201106, end: 201106
  3. NOVOLOG [Concomitant]
     Active Substance: INSULIN ASPART
  4. ADDERALL [Concomitant]
     Active Substance: AMPHETAMINE ASPARTATE\AMPHETAMINE SULFATE\DEXTROAMPHETAMINE SACCHARATE\DEXTROAMPHETAMINE SULFATE
  5. METFORMIN [Concomitant]
     Active Substance: METFORMIN HYDROCHLORIDE
  6. XYREM [Suspect]
     Active Substance: SODIUM OXYBATE
     Dosage: 4.5 G, BID
     Route: 048
     Dates: start: 201107, end: 201111
  7. ASPIRIN. [Concomitant]
     Active Substance: ASPIRIN
  8. HUMALOG MIX [Concomitant]
     Active Substance: INSULIN LISPRO
  9. NUVIGIL [Concomitant]
     Active Substance: ARMODAFINIL
  10. XYREM [Suspect]
     Active Substance: SODIUM OXYBATE
     Indication: CATAPLEXY
     Dosage: DOSE ADJUSTMENTS
     Route: 048
     Dates: start: 201106, end: 201107
  11. LISINOPRIL. [Concomitant]
     Active Substance: LISINOPRIL
  12. PAROXETINE HCL [Concomitant]
     Active Substance: PAROXETINE HYDROCHLORIDE
  13. LANTUS [Concomitant]
     Active Substance: INSULIN GLARGINE

REACTIONS (1)
  - Blood pressure increased [Unknown]
